FAERS Safety Report 4610889-9 (Version None)
Quarter: 2005Q1

REPORT INFORMATION
  Report Type: 
  Country: None (occurrence: None)
  Receive Date: 20050317
  Receipt Date: 20050307
  Transmission Date: 20050727
  Serious: Yes (Other)
  Sender: FDA-Public Use
  Company Number: GB-ABBOTT-05P-167-0293107-00

PATIENT
  Age: 19 Year
  Sex: Female
  Weight: 98 kg

DRUGS (2)
  1. REDUCTIL 10MG [Suspect]
     Indication: WEIGHT CONTROL
     Route: 048
     Dates: start: 20050113, end: 20050127
  2. REDUCTIL 10MG [Suspect]
     Indication: WEIGHT DECREASED
     Route: 048
     Dates: start: 20050113, end: 20050127

REACTIONS (2)
  - HALLUCINATION, VISUAL [None]
  - PARANOIA [None]
